FAERS Safety Report 6887448-0 (Version None)
Quarter: 2010Q3

REPORT INFORMATION
  Report Type: 
  Country: None (occurrence: None)
  Receive Date: 20100730
  Receipt Date: 20100724
  Transmission Date: 20110219
  Serious: Yes (Other)
  Sender: FDA-Public Use
  Company Number: US-JNJCH-2010017395

PATIENT
  Age: 64 Year
  Sex: Male
  Weight: 95.3 kg

DRUGS (1)
  1. ZYRTEC [Suspect]
     Indication: NASAL CONGESTION
     Route: 048
     Dates: start: 20100718, end: 20100719

REACTIONS (3)
  - DYSURIA [None]
  - PAIN [None]
  - PROSTATOMEGALY [None]
